FAERS Safety Report 23670043 (Version 1)
Quarter: 2024Q1

REPORT INFORMATION
  Report Type: Spontaneous
  Country: CA (occurrence: CA)
  Receive Date: 20240325
  Receipt Date: 20240325
  Transmission Date: 20240410
  Serious: Yes (Hospitalization, Other)
  Sender: FDA-Public Use
  Company Number: CA-ORGANON-O2403CAN002176

PATIENT
  Age: 11 Year
  Sex: Male

DRUGS (44)
  1. SINGULAIR [Suspect]
     Active Substance: MONTELUKAST SODIUM
     Indication: Product used for unknown indication
     Dosage: 10 MILLIGRAM, 1 EVERY 1 DAYS
     Route: 048
  2. ARIPIPRAZOLE [Suspect]
     Active Substance: ARIPIPRAZOLE
     Indication: Product used for unknown indication
     Dosage: 2 MILLIGRAM, 1 EVERY 8 HOURS
     Route: 048
  3. BACLOFEN [Suspect]
     Active Substance: BACLOFEN
     Indication: Product used for unknown indication
     Dosage: 20 MILLIGRAM, 1 EVERY 8 HOURS
     Route: 048
  4. BISACODYL [Suspect]
     Active Substance: BISACODYL
     Indication: Product used for unknown indication
     Dosage: 5 MILLIGRAM, 1 EVERY 1 DAYS
     Route: 048
  5. CELECOXIB [Suspect]
     Active Substance: CELECOXIB
     Indication: Pain management
     Dosage: 1 MILLIGRAM, 2 EVERY 1 DAYS
     Route: 048
  6. CLOBAZAM [Suspect]
     Active Substance: CLOBAZAM
     Indication: Back pain
     Dosage: 20 MILLIGRAM, 2 EVERY 1 DAYS
     Route: 048
  7. CLONIDINE [Suspect]
     Active Substance: CLONIDINE
     Indication: Product used for unknown indication
     Dosage: 0.1 MILLIGRAM, 1 EVERY 1 DAY
     Route: 048
  8. CLONIDINE [Suspect]
     Active Substance: CLONIDINE
     Dosage: 0.05 MILLIGRAM, 1 EVERY 1 DAY
     Route: 048
  9. DIMENHYDRINATE [Suspect]
     Active Substance: DIMENHYDRINATE
     Indication: Constipation
     Dosage: 25 MILLIGRAM, 1 EVERY 1 DAY
     Route: 048
  10. DIPHENHYDRAMINE [Suspect]
     Active Substance: DIPHENHYDRAMINE
     Indication: Pruritus
     Dosage: 12.5 MILLIGRAM, 4 EVERY 1 DAYS
     Route: 048
  11. ELIGARD [Suspect]
     Active Substance: LEUPROLIDE ACETATE
     Indication: Product used for unknown indication
     Dosage: 7.5 MILLIGRAM, 1 EVERY 1 MONTH
     Route: 030
  12. FISH OIL [Suspect]
     Active Substance: FISH OIL
     Indication: Product used for unknown indication
     Dosage: 200 MILLIGRAM, 1 EVERY 1 DAY
     Route: 048
  13. FLUOXETINE HYDROCHLORIDE [Suspect]
     Active Substance: FLUOXETINE HYDROCHLORIDE
     Indication: Product used for unknown indication
     Dosage: 20 MILLIGRAM, 1 EVERY 1 DAY
     Route: 048
  14. FLUTICASONE [Suspect]
     Active Substance: FLUTICASONE
     Indication: Product used for unknown indication
     Dosage: 1 EVERY 1 DAY
     Route: 065
  15. GABAPENTIN [Suspect]
     Active Substance: GABAPENTIN
     Indication: Pain management
     Dosage: 600 MILLIGRAM, 2 EVERY 1 DAY
     Route: 048
  16. GABAPENTIN [Suspect]
     Active Substance: GABAPENTIN
     Dosage: 600 MILLIGRAM, 3 EVERY 1 DAY
     Route: 048
  17. HYDROMORPHONE HYDROCHLORIDE [Suspect]
     Active Substance: HYDROMORPHONE HYDROCHLORIDE
     Indication: Pain management
     Dosage: UNK
     Route: 065
  18. HYDROXYCHLOROQUINE SULFATE [Suspect]
     Active Substance: HYDROXYCHLOROQUINE SULFATE
     Indication: Product used for unknown indication
     Dosage: 400 MILLIGRAM, 1 EVERY 1 DAY
     Route: 048
  19. KETOROLAC [Suspect]
     Active Substance: KETOROLAC TROMETHAMINE
     Indication: Pain
     Dosage: 20 MILLIGRAM, 4 EVERY 1 DAY
     Route: 048
  20. LEUPROLIDE ACETATE [Suspect]
     Active Substance: ISOPROPYL ALCOHOL\LEUPROLIDE ACETATE
     Indication: Product used for unknown indication
     Dosage: 7.5 MILLIGRAM, 1 EVERY 1 MONTH
     Route: 030
  21. LORAZEPAM [Suspect]
     Active Substance: LORAZEPAM
     Indication: Seizure
     Dosage: UNK
     Route: 065
  22. LORAZEPAM [Suspect]
     Active Substance: LORAZEPAM
     Indication: Pain management
  23. LORAZEPAM [Suspect]
     Active Substance: LORAZEPAM
     Indication: Muscle spasms
  24. POLYETHYLENE GLYCOLS [Suspect]
     Active Substance: POLYETHYLENE GLYCOLS
     Indication: Product used for unknown indication
     Dosage: 30 MILLIGRAM, 2 EVERY 1 DAY
     Route: 048
  25. POLYETHYLENE GLYCOLS [Suspect]
     Active Substance: POLYETHYLENE GLYCOLS
     Dosage: 30 MILLIGRAM, 1 EVERY 12 HOURS
     Route: 048
  26. MELATONIN [Suspect]
     Active Substance: MELATONIN
     Indication: Sleep deficit
     Dosage: 10 MILLIGRAM, 1 EVERY 1 DAYS
     Route: 048
  27. METHADONE [Suspect]
     Active Substance: METHADONE HYDROCHLORIDE
     Indication: Back pain
     Dosage: 2 MILLIGRAM, 3 EVERY 1 DAYS
     Route: 048
  28. METHOCARBAMOL [Suspect]
     Active Substance: METHOCARBAMOL
     Indication: Product used for unknown indication
     Dosage: UNK
     Route: 048
  29. METHOCARBAMOL [Suspect]
     Active Substance: METHOCARBAMOL
     Dosage: 2 EVERY 1 DAY
     Route: 048
  30. METHOCARBAMOL [Suspect]
     Active Substance: METHOCARBAMOL
     Dosage: UNK
     Route: 065
  31. PANTOPRAZOLE [Suspect]
     Active Substance: PANTOPRAZOLE
     Indication: Product used for unknown indication
     Dosage: 40 MILLIGRAM, 1 EVERY 1 DAYS
     Route: 048
  32. PHENOBARBITAL [Suspect]
     Active Substance: PHENOBARBITAL
     Indication: Product used for unknown indication
     Dosage: 30 MILLIGRAM, 2 EVERY 1 DAYS
     Route: 048
  33. RANITIDINE HYDROCHLORIDE [Suspect]
     Active Substance: RANITIDINE HYDROCHLORIDE
     Indication: Product used for unknown indication
     Dosage: 150 MILLIGRAM, 1 EVERY 1 DAY
     Route: 048
  34. ALBUTEROL [Suspect]
     Active Substance: ALBUTEROL
     Indication: Product used for unknown indication
     Dosage: 150 MICROGRAM
     Route: 065
  35. ALBUTEROL [Suspect]
     Active Substance: ALBUTEROL
     Dosage: 100 MICROGRAM
     Route: 065
  36. TYLENOL [Suspect]
     Active Substance: ACETAMINOPHEN
     Indication: Product used for unknown indication
     Dosage: 400 MILLIGRAM, 2 EVERY 1 DAYS
     Route: 048
  37. ASCORBIC ACID [Suspect]
     Active Substance: ASCORBIC ACID
     Indication: Product used for unknown indication
     Dosage: 1500 MILLIGRAM, 1 EVERY 1 DAY
     Route: 048
  38. ASCORBIC ACID [Suspect]
     Active Substance: ASCORBIC ACID
     Dosage: 1500 MILLIGRAM, 1 EVERY 1 DAY
     Route: 048
  39. VITAMIN D3 [Suspect]
     Active Substance: CHOLECALCIFEROL
     Indication: Product used for unknown indication
     Dosage: 1 EVERY 1 DAY
     Route: 048
  40. VITAMIN D3 [Suspect]
     Active Substance: CHOLECALCIFEROL
     Dosage: 200 IU INTERNATIONAL UNIT(S), 1 EVERY 1 DAY
     Route: 048
  41. FLUTICASONE [Suspect]
     Active Substance: FLUTICASONE
     Indication: Product used for unknown indication
     Dosage: 250 MICROGRAM, 1 EVERY 1 DAY
     Route: 048
  42. LORAZEPAM [Suspect]
     Active Substance: LORAZEPAM
     Indication: Seizure
     Dosage: 0.5 MILLIGRAM
     Route: 060
  43. LORAZEPAM [Suspect]
     Active Substance: LORAZEPAM
     Indication: Pain management
     Dosage: 2 MILLIGRAM
     Route: 060
  44. LORAZEPAM [Suspect]
     Active Substance: LORAZEPAM
     Indication: Muscle spasms

REACTIONS (7)
  - Respiratory depression [Recovered/Resolved]
  - Drug abuse [Recovered/Resolved]
  - Drug dependence [Recovered/Resolved]
  - Drug ineffective [Recovered/Resolved]
  - Off label use [Recovered/Resolved]
  - Product prescribing error [Recovered/Resolved]
  - Product use issue [Recovered/Resolved]
